FAERS Safety Report 7219837-9 (Version None)
Quarter: 2011Q1

REPORT INFORMATION
  Report Type: 
  Country: None (occurrence: None)
  Receive Date: 20110111
  Receipt Date: 20110103
  Transmission Date: 20110831
  Serious: Yes (Death, Other)
  Sender: FDA-Public Use
  Company Number: DZ-ROCHE-751421

PATIENT
  Age: 52 Year
  Sex: Female

DRUGS (3)
  1. METHOTREXATE [Suspect]
     Indication: BREAST CANCER
     Dosage: FREQUENCY : PER CURE.
     Route: 065
     Dates: start: 20100905, end: 20100905
  2. AVASTIN [Suspect]
     Indication: BREAST CANCER
     Dosage: FREQUENCY : PER CURE.
     Route: 042
     Dates: start: 20100905, end: 20100905
  3. AVASTIN [Suspect]
     Dosage: FREQUENCY : PER CURE.
     Route: 042
     Dates: start: 20101014, end: 20101014

REACTIONS (6)
  - DEATH [None]
  - THROMBOCYTOPENIA [None]
  - GENERAL PHYSICAL HEALTH DETERIORATION [None]
  - NEOPLASM MALIGNANT [None]
  - DECREASED APPETITE [None]
  - LEUKOPENIA [None]
